FAERS Safety Report 9381482 (Version 2)
Quarter: 2013Q3

REPORT INFORMATION
  Report Type: Spontaneous
  Country: US (occurrence: US)
  Receive Date: 20130703
  Receipt Date: 20130802
  Transmission Date: 20140515
  Serious: Yes (Other)
  Sender: FDA-Public Use
  Company Number: PHEH2013US014090

PATIENT
  Sex: Female

DRUGS (7)
  1. TEKTURNA [Suspect]
     Dosage: 300 MG, QD
  2. DIOVAN [Concomitant]
     Dosage: 80 MG, BID
  3. JANUVIA [Concomitant]
  4. SYNTHROID [Concomitant]
  5. PREDNISONE [Concomitant]
  6. ZETIA [Concomitant]
  7. FEMPRO [Concomitant]

REACTIONS (4)
  - Diabetes mellitus [Unknown]
  - Blood pressure increased [Unknown]
  - Eye disorder [Unknown]
  - Drug ineffective [Unknown]
